FAERS Safety Report 19761858 (Version 4)
Quarter: 2021Q4

REPORT INFORMATION
  Report Type: Spontaneous
  Country: IT (occurrence: IT)
  Receive Date: 20210830
  Receipt Date: 20211110
  Transmission Date: 20220303
  Serious: Yes (Hospitalization)
  Sender: FDA-Public Use
  Company Number: None

PATIENT
  Age: 61 Year
  Sex: Male

DRUGS (7)
  1. TAMSULOSIN HYDROCHLORIDE [Suspect]
     Active Substance: TAMSULOSIN HYDROCHLORIDE
     Indication: Product used for unknown indication
     Dosage: 1 DF, CYCLIC
     Route: 048
  2. AMIODARONE [Suspect]
     Active Substance: AMIODARONE
     Indication: Product used for unknown indication
     Dosage: 1 DF, CYCLIC
     Route: 048
  3. COUMADIN [Suspect]
     Active Substance: WARFARIN SODIUM
     Indication: Product used for unknown indication
     Dosage: 5 MG, PRN (AS NEEDED)
     Route: 048
  4. FUROSEMIDE [Concomitant]
     Active Substance: FUROSEMIDE
     Indication: Product used for unknown indication
     Dosage: 1 DF
     Route: 048
  5. PANTOPRAZOLE [Concomitant]
     Active Substance: PANTOPRAZOLE
     Indication: Product used for unknown indication
     Dosage: 1 DF
     Route: 048
  6. BISOPROLOL FUMARATE [Concomitant]
     Active Substance: BISOPROLOL FUMARATE
     Indication: Product used for unknown indication
     Dosage: 1 DF
     Route: 048
  7. CANRENONE [Concomitant]
     Active Substance: CANRENONE
     Indication: Product used for unknown indication
     Dosage: 1 DF
     Route: 048

REACTIONS (4)
  - Pyrexia [Recovering/Resolving]
  - Anaemia [Recovering/Resolving]
  - Palpitations [Recovering/Resolving]
  - Tachycardia [Recovering/Resolving]

NARRATIVE: CASE EVENT DATE: 20210711
